FAERS Safety Report 6296470-7 (Version None)
Quarter: 2009Q3

REPORT INFORMATION
  Report Type: 
  Country: None (occurrence: None)
  Receive Date: 20090804
  Receipt Date: 20090728
  Transmission Date: 20100115
  Serious: Yes (Hospitalization)
  Sender: FDA-Public Use
  Company Number: A0790458A

PATIENT
  Age: 57 Year
  Sex: Male
  Weight: 140.9 kg

DRUGS (2)
  1. AVANDIA [Suspect]
     Dosage: 4MG SEE DOSAGE TEXT
     Route: 048
     Dates: start: 20030228, end: 20050101
  2. AVANDAMET [Suspect]
     Route: 048
     Dates: start: 20030127, end: 20030228

REACTIONS (3)
  - ACUTE RESPIRATORY FAILURE [None]
  - CARDIAC FAILURE CONGESTIVE [None]
  - COR PULMONALE CHRONIC [None]
